FAERS Safety Report 17607259 (Version 1)
Quarter: 2020Q1

REPORT INFORMATION
  Report Type: Spontaneous
  Country: JP (occurrence: JP)
  Receive Date: 20200331
  Receipt Date: 20200331
  Transmission Date: 20200409
  Serious: Yes (Other)
  Sender: FDA-Public Use
  Company Number: JP-SEATTLE GENETICS-2020SGN01685

PATIENT
  Age: 7 Decade
  Sex: Male

DRUGS (1)
  1. ADCETRIS [Suspect]
     Active Substance: BRENTUXIMAB VEDOTIN
     Indication: PERIPHERAL T-CELL LYMPHOMA UNSPECIFIED
     Dosage: 1.8 MILLIGRAM/KILOGRAM
     Route: 041
     Dates: start: 20200304, end: 20200304

REACTIONS (3)
  - Disease progression [Unknown]
  - Gastrointestinal haemorrhage [Recovering/Resolving]
  - Peripheral T-cell lymphoma unspecified [Unknown]

NARRATIVE: CASE EVENT DATE: 20200310
